FAERS Safety Report 9077258 (Version 1)
Quarter: 2013Q1

REPORT INFORMATION
  Report Type: Report from Study
  Country: US (occurrence: US)
  Receive Date: 20130129
  Receipt Date: 20130129
  Transmission Date: 20140127
  Serious: No
  Sender: FDA-Public Use
  Company Number: US-ABBOTT-12P-163-0946283-00

PATIENT
  Age: 69 Year
  Sex: Female

DRUGS (6)
  1. HUMIRA 40 MG/0.8 ML PEN [Suspect]
     Indication: CROHN^S DISEASE
     Dates: start: 20120608, end: 20120608
  2. HUMIRA 40 MG/0.8 ML PEN [Suspect]
     Dates: start: 201206
  3. IMODIUM [Concomitant]
     Indication: PRODUCT USED FOR UNKNOWN INDICATION
     Dosage: 2 PILLS AS NEEDED
  4. VITAMIN D [Concomitant]
     Indication: VITAMIN D DECREASED
  5. ADVAIR [Concomitant]
     Indication: HYPERSENSITIVITY
  6. MELATONIN [Concomitant]
     Indication: INSOMNIA

REACTIONS (2)
  - Injection site pain [Recovered/Resolved]
  - Frequent bowel movements [Recovered/Resolved]
